FAERS Safety Report 18212411 (Version 1)
Quarter: 2020Q3

REPORT INFORMATION
  Report Type: Spontaneous
  Country: CN (occurrence: CN)
  Receive Date: 20200831
  Receipt Date: 20200831
  Transmission Date: 20201103
  Serious: Yes (Other)
  Sender: FDA-Public Use
  Company Number: CN-PFIZER INC-2020333871

PATIENT
  Age: 68 Year
  Sex: Male
  Weight: 45 kg

DRUGS (2)
  1. SODIUM CHLORIDE. [Concomitant]
     Active Substance: SODIUM CHLORIDE
     Indication: VEHICLE SOLUTION USE
     Dosage: 100 ML, 2X/DAY
     Route: 041
     Dates: start: 20200702, end: 20200713
  2. VORICONAZOLE. [Suspect]
     Active Substance: VORICONAZOLE
     Indication: FUNGAL INFECTION
     Dosage: 200 MG, 2X/DAY
     Route: 041
     Dates: start: 20200702, end: 20200713

REACTIONS (2)
  - Hallucination [Recovering/Resolving]
  - Physical disability [Recovering/Resolving]

NARRATIVE: CASE EVENT DATE: 20200706
